FAERS Safety Report 15866378 (Version 5)
Quarter: 2019Q2

REPORT INFORMATION
  Report Type: Spontaneous
  Country: US (occurrence: US)
  Receive Date: 20190125
  Receipt Date: 20190606
  Transmission Date: 20190711
  Serious: Yes (Other)
  Sender: FDA-Public Use
  Company Number: US-PFIZER INC-2019027316

PATIENT
  Age: 54 Year
  Sex: Female
  Weight: 62 kg

DRUGS (6)
  1. LYRICA [Suspect]
     Active Substance: PREGABALIN
     Indication: PAIN
     Dosage: 75 MG, 2X/DAY [ONE IN THE MORNING AND ONE AT NIGHT]
     Route: 048
     Dates: start: 201808
  2. LYRICA [Suspect]
     Active Substance: PREGABALIN
     Indication: CERVICAL VERTEBRAL FRACTURE
  3. VITAMIN D [COLECALCIFEROL] [Concomitant]
     Active Substance: CHOLECALCIFEROL
     Indication: SUPPLEMENTATION THERAPY
     Dosage: 1000 IU, UNK
  4. LYRICA [Suspect]
     Active Substance: PREGABALIN
     Indication: SPINAL CORD INJURY
     Dosage: 75 MG, 2X/DAY [ONE IN THE MORNING AND ONE AT NIGHT]
     Route: 048
  5. LYRICA [Suspect]
     Active Substance: PREGABALIN
     Indication: HYPOAESTHESIA
     Dosage: 75 MG, 2X/DAY [ONE IN THE MORNING AND ONE AT NIGHT]
     Route: 048
  6. LYRICA [Suspect]
     Active Substance: PREGABALIN
     Indication: NECK INJURY
     Dosage: 75 MG, 2X/DAY [ONE IN THE MORNING AND ONE AT NIGHT]
     Route: 048

REACTIONS (5)
  - Therapeutic product effect incomplete [Recovering/Resolving]
  - Fall [Unknown]
  - Feeling abnormal [Unknown]
  - Concussion [Unknown]
  - Expired product administered [Unknown]

NARRATIVE: CASE EVENT DATE: 201808
